FAERS Safety Report 8791776 (Version 1)
Quarter: 2012Q4

REPORT INFORMATION
  Report Type: 
  Country: US (occurrence: US)
  Receive Date: 20120918
  Receipt Date: 20120918
  Transmission Date: 20130627
  Serious: Yes (Hospitalization, Disabling, Other)
  Sender: FDA-Public Use
  Company Number: US-009507513-1105USA01487

PATIENT

DRUGS (1)
  1. FOSAMAX [Suspect]
     Indication: OSTEOPOROSIS
     Dosage: 70 mg, QW
     Route: 048
     Dates: start: 2000

REACTIONS (66)
  - Sinus disorder [Unknown]
  - Arthropathy [Unknown]
  - Uterine disorder [Unknown]
  - Ovarian disorder [Unknown]
  - Appendix disorder [Unknown]
  - Tonsillar disorder [Unknown]
  - Adenoidal disorder [Unknown]
  - Gallbladder disorder [Unknown]
  - Arthropathy [Unknown]
  - Osteonecrosis of jaw [Not Recovered/Not Resolved]
  - Exostosis [Unknown]
  - Impaired healing [Unknown]
  - Depression [Unknown]
  - Anxiety [Unknown]
  - Tooth disorder [Unknown]
  - Oral infection [Unknown]
  - Fungal infection [Unknown]
  - Hypertension [Unknown]
  - Blood cholesterol increased [Unknown]
  - Diabetes mellitus [Unknown]
  - Cardiac disorder [Unknown]
  - Restless legs syndrome [Unknown]
  - Chest pain [Unknown]
  - Palpitations [Unknown]
  - Mitral valve incompetence [Unknown]
  - Meniscus injury [Unknown]
  - Joint effusion [Unknown]
  - Patellofemoral pain syndrome [Unknown]
  - Chondromalacia [Unknown]
  - Hyperlipidaemia [Unknown]
  - Diverticulum [Unknown]
  - Weight decreased [Unknown]
  - Sinus disorder [Unknown]
  - Bronchitis [Unknown]
  - Breast mass [Unknown]
  - Periodontal disease [Unknown]
  - Tooth abscess [Unknown]
  - Abscess [Unknown]
  - Dental caries [Unknown]
  - Tooth fracture [Unknown]
  - Exostosis of jaw [Unknown]
  - Hypoaesthesia oral [Unknown]
  - Tongue discolouration [Unknown]
  - Nerve injury [Unknown]
  - Cystitis [Unknown]
  - Dysuria [Unknown]
  - Meniscus injury [Unknown]
  - Oral pain [Unknown]
  - Tongue discolouration [Unknown]
  - Dyspnoea [Unknown]
  - Dry mouth [Unknown]
  - Glossodynia [Unknown]
  - Cough [Unknown]
  - Gastrooesophageal reflux disease [Not Recovered/Not Resolved]
  - Arthralgia [Unknown]
  - Drug hypersensitivity [Unknown]
  - Drug hypersensitivity [Unknown]
  - Hypersensitivity [Unknown]
  - Hypersensitivity [Unknown]
  - Drug hypersensitivity [Unknown]
  - Hypersensitivity [Unknown]
  - Vertigo [Unknown]
  - Abdominal pain [Unknown]
  - Arthralgia [Unknown]
  - Bone pain [Unknown]
  - Oedema mouth [Unknown]
